FAERS Safety Report 17141360 (Version 1)
Quarter: 2019Q4

REPORT INFORMATION
  Report Type: Spontaneous
  Country: UA (occurrence: UA)
  Receive Date: 20191211
  Receipt Date: 20191211
  Transmission Date: 20200122
  Serious: Yes (Other)
  Sender: FDA-Public Use
  Company Number: UA-SA-2019SA334205

PATIENT
  Age: 30 Year
  Sex: Female
  Weight: 80 kg

DRUGS (23)
  1. MOXIFLOXACIN HYDROCHLORIDE. [Suspect]
     Active Substance: MOXIFLOXACIN HYDROCHLORIDE
     Indication: ANTIPHOSPHOLIPID SYNDROME
     Dosage: 400 MG, QD
     Dates: start: 201804
  2. PLAQUENIL [Suspect]
     Active Substance: HYDROXYCHLOROQUINE SULFATE
     Indication: ANTIPHOSPHOLIPID SYNDROME
     Dosage: 400 MG, QD
  3. SILDENAFIL CITRATE. [Suspect]
     Active Substance: SILDENAFIL CITRATE
     Indication: ANTIPHOSPHOLIPID SYNDROME
     Dosage: 60 MG, QD
  4. OXYGEN. [Concomitant]
     Active Substance: OXYGEN
     Dosage: 30-40% OXYGEN THROUGH AN OXYGEN CONCENTRATOR IN CASE OF SATURATION REDUCTION OF LESS THAN 88%
  5. FOLIC ACID. [Concomitant]
     Active Substance: FOLIC ACID
     Indication: ANTIPHOSPHOLIPID SYNDROME
     Dosage: 5 MG, QW
     Dates: start: 2018
  6. RIVAROXABAN [Concomitant]
     Active Substance: RIVAROXABAN
     Indication: ANTIPHOSPHOLIPID SYNDROME
     Dosage: 20 MG, QD
  7. WARFARIN [Concomitant]
     Active Substance: WARFARIN
     Indication: PULMONARY THROMBOSIS
     Dosage: 5 MG, QD
  8. METHYLPREDNISOLONE. [Concomitant]
     Active Substance: METHYLPREDNISOLONE
     Dosage: 16 MG, QD
     Dates: start: 2018
  9. CHLOROQUINE. [Concomitant]
     Active Substance: CHLOROQUINE
     Indication: ANTIPHOSPHOLIPID SYNDROME
     Dosage: 500 MG, QD
     Dates: start: 201804
  10. ENOXAPARIN SODIUM. [Suspect]
     Active Substance: ENOXAPARIN SODIUM
     Indication: ANTIPHOSPHOLIPID SYNDROME
     Dosage: 0.4 ML
     Dates: start: 2018
  11. METHYLPREDNISOLONE. [Concomitant]
     Active Substance: METHYLPREDNISOLONE
     Dosage: 125 UNK
     Route: 041
  12. METHYLPREDNISOLONE. [Concomitant]
     Active Substance: METHYLPREDNISOLONE
     Dosage: 125 UNK
     Route: 048
  13. ILOPROST. [Concomitant]
     Active Substance: ILOPROST
     Indication: ANTIPHOSPHOLIPID SYNDROME
     Dosage: 2.5 MG, 6ID
     Route: 055
  14. DABIGATRAN [Concomitant]
     Active Substance: DABIGATRAN
     Indication: ANTIPHOSPHOLIPID SYNDROME
     Dosage: 300 MG, QD
  15. METHYLPREDNISOLONE. [Concomitant]
     Active Substance: METHYLPREDNISOLONE
     Dosage: 32 MG, QD
     Dates: start: 2018
  16. METHYLPREDNISOLONE. [Concomitant]
     Active Substance: METHYLPREDNISOLONE
     Indication: ANTIPHOSPHOLIPID SYNDROME
     Dosage: 64 MG, QD
     Dates: start: 2018
  17. METHOTREXATE. [Suspect]
     Active Substance: METHOTREXATE
     Indication: ABORTION
     Dosage: UNK UNK, QOD (3 INJECTIONS)
     Route: 030
     Dates: start: 2016
  18. METHYLPREDNISOLONE. [Concomitant]
     Active Substance: METHYLPREDNISOLONE
     Dosage: GRADUAL DECREASE IN THE DOSE BY 4 MG/10 DAYS
     Dates: start: 2018
  19. METHYLPREDNISOLONE. [Concomitant]
     Active Substance: METHYLPREDNISOLONE
     Dosage: GRADUAL DECREASE IN THE DOSE   BY  2  MG/10  DAYS  UNTIL  COMPLETE  WITHDRAWAL
     Dates: start: 2018
  20. PANTOPRAZOLE [Concomitant]
     Active Substance: PANTOPRAZOLE
     Indication: ANTIPHOSPHOLIPID SYNDROME
     Dosage: 40 MG
     Dates: start: 2018
  21. METHOTREXATE. [Suspect]
     Active Substance: METHOTREXATE
     Indication: ANTIPHOSPHOLIPID SYNDROME
     Dosage: 20 MG, QW
     Route: 030
     Dates: start: 2018
  22. METHYLPREDNISOLONE. [Concomitant]
     Active Substance: METHYLPREDNISOLONE
     Dosage: 32 MG, QD
     Dates: start: 2018
  23. OXYGEN. [Concomitant]
     Active Substance: OXYGEN
     Indication: ANTIPHOSPHOLIPID SYNDROME
     Dosage: UNK UNK, QMN (2-3  L/MIN)
     Dates: start: 2018

REACTIONS (5)
  - Off label use [Unknown]
  - Granulomatous lymphadenitis [Unknown]
  - Lymphadenopathy [Unknown]
  - Unintentional use for unapproved indication [Unknown]
  - Lymphadenitis [Unknown]

NARRATIVE: CASE EVENT DATE: 2017
